FAERS Safety Report 20346129 (Version 1)
Quarter: 2022Q1

REPORT INFORMATION
  Report Type: Spontaneous
  Country: US (occurrence: US)
  Receive Date: 20220118
  Receipt Date: 20220118
  Transmission Date: 20220423
  Serious: No
  Sender: FDA-Public Use
  Company Number: US-AMNEAL PHARMACEUTICALS-2021-AMRX-04646

PATIENT
  Sex: Female

DRUGS (1)
  1. CITALOPRAM HYDROBROMIDE [Suspect]
     Active Substance: CITALOPRAM HYDROBROMIDE
     Indication: Product used for unknown indication
     Dosage: UNK
     Route: 065
     Dates: start: 2013, end: 2013

REACTIONS (4)
  - Drug ineffective [Unknown]
  - Depression [Unknown]
  - Anxiety [Unknown]
  - Product substitution issue [Unknown]

NARRATIVE: CASE EVENT DATE: 20130101
